FAERS Safety Report 5210842-0 (Version None)
Quarter: 2007Q1

REPORT INFORMATION
  Report Type: 
  Country: None (occurrence: None)
  Receive Date: 20070117
  Receipt Date: 20070102
  Transmission Date: 20070707
  Serious: Yes (Hospitalization)
  Sender: FDA-Public Use
  Company Number: DE-PFIZER INC-2007003892

PATIENT
  Age: 62 Year
  Sex: Male

DRUGS (3)
  1. ZOLOFT [Suspect]
     Indication: ANXIETY DISORDER
     Dosage: DAILY DOSE:100MG-FREQ:FREQUENCY: DAILY
     Route: 048
  2. ZOLOFT [Interacting]
     Indication: DEPRESSION
  3. CLOZAPINE [Interacting]
     Dosage: DAILY DOSE:175MG-FREQ:FREQUENCY: DAILY
     Route: 048
     Dates: start: 20011116, end: 20020103

REACTIONS (2)
  - DRUG INTERACTION [None]
  - HEPATIC ENZYME INCREASED [None]
